FAERS Safety Report 6026300-X (Version None)
Quarter: 2008Q4

REPORT INFORMATION
  Report Type: 
  Country: None (occurrence: None)
  Receive Date: 20081230
  Receipt Date: 20081215
  Transmission Date: 20090506
  Serious: Yes (Hospitalization, Other)
  Sender: FDA-Public Use
  Company Number: ACO_00497_2008

PATIENT
  Age: 70 Year
  Sex: Male

DRUGS (3)
  1. TIZANIDINE HCL [Suspect]
     Indication: BACK PAIN
     Dosage: (DF ORAL)
     Route: 048
     Dates: start: 20070502, end: 20070530
  2. LOXOPROFEN SODIUM (LOXOPROFEN SODIUM) [Suspect]
     Indication: BACK PAIN
     Dosage: (180 MG ORAL)
     Route: 048
     Dates: start: 20070502, end: 20070530
  3. ETIZOLAM (ETIZOLAM) [Suspect]
     Indication: BACK PAIN
     Dosage: (3 MG ORAL)
     Route: 048
     Dates: start: 20070502, end: 20070530

REACTIONS (3)
  - BUNDLE BRANCH BLOCK RIGHT [None]
  - VENTRICULAR EXTRASYSTOLES [None]
  - VENTRICULAR TACHYCARDIA [None]
